FAERS Safety Report 6584553-3 (Version None)
Quarter: 2010Q1

REPORT INFORMATION
  Report Type: 
  Country: None (occurrence: None)
  Receive Date: 20100213
  Receipt Date: 20100213
  Transmission Date: 20100710
  Serious: No
  Sender: FDA-Public Use
  Company Number: None

PATIENT
  Age: 28 Year
  Sex: Female
  Weight: 113.3993 kg

DRUGS (2)
  1. BENAZEPRIL HYDROCHLORIDE [Suspect]
     Indication: COUGH
     Dosage: 40 MG QD PO
     Route: 048
     Dates: start: 20091101
  2. BENAZEPRIL HYDROCHLORIDE [Suspect]
     Indication: SWELLING
     Dosage: 40 MG QD PO
     Route: 048
     Dates: start: 20091101

REACTIONS (2)
  - COUGH [None]
  - LOCAL SWELLING [None]
